FAERS Safety Report 15739326 (Version 2)
Quarter: 2018Q4

REPORT INFORMATION
  Report Type: Spontaneous
  Country: US (occurrence: US)
  Receive Date: 20181219
  Receipt Date: 20181221
  Transmission Date: 20190205
  Serious: Yes (Hospitalization)
  Sender: FDA-Public Use
  Company Number: US-NOVOPROD-638365

PATIENT
  Age: 38 Year
  Sex: Female

DRUGS (17)
  1. ELAGOLIX SODIUM [Suspect]
     Active Substance: ELAGOLIX SODIUM
     Dosage: 400 MG, QD
     Route: 048
     Dates: start: 20181102
  2. GINKO BILOBA [Concomitant]
     Active Substance: GINKGO
     Indication: AMNESIA
     Dosage: 120 MG, QD
     Route: 048
     Dates: start: 20150101
  3. ELAGOLIX SODIUM [Suspect]
     Active Substance: ELAGOLIX SODIUM
     Indication: ENDOMETRIOSIS
     Dosage: 400 MG, QD
     Route: 048
     Dates: start: 20180607, end: 20181021
  4. VITAMIN D3 [Concomitant]
     Active Substance: CHOLECALCIFEROL
     Indication: VITAMIN D DECREASED
     Dosage: 20000 IU, QD
     Route: 048
     Dates: start: 20140801
  5. BIOTIN [Concomitant]
     Active Substance: BIOTIN
     Indication: SUPPLEMENTATION THERAPY
     Dosage: 45000 MG, QD
     Route: 048
     Dates: start: 20150101
  6. ADIPEX                             /00131701/ [Concomitant]
     Indication: WEIGHT INCREASED
     Dosage: 75 MG, QD
     Route: 048
     Dates: start: 20150101
  7. ACTIVELLA [Suspect]
     Active Substance: ESTRADIOL\NORETHINDRONE ACETATE
     Dosage: UNK
     Route: 048
     Dates: start: 20181102
  8. HYDROCHLOROTHIAZIDE. [Concomitant]
     Active Substance: HYDROCHLOROTHIAZIDE
     Indication: ABDOMINAL DISTENSION
     Dosage: 12.5 MG, QD
     Route: 048
     Dates: start: 20180604
  9. FISH OIL PLUS VITAMIN D [Concomitant]
     Indication: SUPPLEMENTATION THERAPY
     Dosage: UNK
     Dates: start: 20150101
  10. HYDROXYZINE [Concomitant]
     Active Substance: HYDROXYZINE HYDROCHLORIDE
     Indication: SLEEP DISORDER
     Dosage: 25 MG, UNK
     Route: 048
     Dates: start: 20150101
  11. ACTIVELLA [Suspect]
     Active Substance: ESTRADIOL\NORETHINDRONE ACETATE
     Indication: ENDOMETRIOSIS
     Dosage: UNK
     Route: 048
     Dates: start: 20180607, end: 20181021
  12. PROBIOTIC                          /06395501/ [Concomitant]
     Active Substance: BIFIDOBACTERIUM ANIMALIS LACTIS
     Indication: DYSPEPSIA
     Dosage: 2 TAB, QD
     Route: 048
     Dates: start: 20150101
  13. COCONUT OIL [Concomitant]
     Active Substance: COCONUT OIL
     Indication: SUPPLEMENTATION THERAPY
     Dosage: 5000 MG, QD
     Route: 048
     Dates: start: 20150101
  14. CRANBERRY FRUIT [Concomitant]
     Indication: URINARY TRACT INFECTION
     Dosage: 8400 MG, QD
     Route: 048
     Dates: start: 20150101
  15. FISH OIL PLUS VITAMIN D [Concomitant]
     Indication: BLOOD CHOLESTEROL INCREASED
  16. TURMERIC                           /01079601/ [Concomitant]
     Active Substance: HERBALS\TURMERIC
     Indication: SUPPLEMENTATION THERAPY
     Dosage: 3000 MG, QD
     Route: 048
     Dates: start: 20150101
  17. VITAMIN C [Concomitant]
     Active Substance: ASCORBIC ACID
     Indication: SUPPLEMENTATION THERAPY
     Dosage: 2000 MG, QD
     Route: 048
     Dates: start: 20150101

REACTIONS (2)
  - Vestibular disorder [Recovered/Resolved]
  - Vestibular migraine [Recovered/Resolved]

NARRATIVE: CASE EVENT DATE: 20181021
